FAERS Safety Report 20833480 (Version 1)
Quarter: 2022Q2

REPORT INFORMATION
  Report Type: Spontaneous
  Country: ES (occurrence: ES)
  Receive Date: 20220516
  Receipt Date: 20220516
  Transmission Date: 20220721
  Serious: Yes (Hospitalization, Other)
  Sender: FDA-Public Use
  Company Number: None

PATIENT
  Age: 45 Year
  Sex: Male

DRUGS (6)
  1. DUPIXENT [Suspect]
     Active Substance: DUPILUMAB
     Indication: Dermatitis atopic
     Dosage: DUPIXENT 300 MG SOLUTION FOR INJECTION IN PRE-FILLED SYRINGE, 2 PRE-FILLED SYRINGES OF 2 ML
     Route: 058
     Dates: start: 20200421
  2. FLUTICASONE FUROATE\VILANTEROL TRIFENATATE [Concomitant]
     Active Substance: FLUTICASONE FUROATE\VILANTEROL TRIFENATATE
     Dosage: 1 DF, QD; HTTPS://LOGIN.VEEVAVAULT.COM/AUTH/LOGIN?RETURL=HTTPS%3A%2F%2FSANOFI-RIM-PRODUCTION.VEEVAVA
     Route: 055
     Dates: start: 20190724
  3. PANTOPRAZOLE SODIUM [Concomitant]
     Active Substance: PANTOPRAZOLE SODIUM
     Dosage: 40 MG, QD; ANAGASTRA 40 MG GASTRO-RESISTANT TABLETS, 28 TABLETS
     Route: 048
     Dates: start: 20200929
  4. ROSUVASTATINA NORMON [Concomitant]
     Dosage: 10 MG, QD; ROSUVASTATIN NORMON 10 MG FILM-COATED TABLETS GSP, 28 TABLETS
     Route: 048
     Dates: start: 20180905
  5. TERBASMIN [TERBUTALINE] [Concomitant]
     Dosage: 500 UG; TERBASMIN TURBUHALER 500 MICROGRAMS/INHALATION INHALATION POWDER, 1 INHALER OF 120 DOSES
     Route: 055
     Dates: start: 20191122
  6. CLOPIDOGREL NORMON [Concomitant]
     Dosage: 75 MG, QD; CLOPIDOGREL NORMON 75 MG FILM-COATED TABLETS GSP, 84 TABLETS
     Route: 048
     Dates: start: 20180905

REACTIONS (1)
  - Pneumonia [Recovered/Resolved]
